FAERS Safety Report 9894586 (Version 1)
Quarter: 2014Q1

REPORT INFORMATION
  Report Type: Spontaneous
  Country: US (occurrence: US)
  Receive Date: 20140213
  Receipt Date: 20140213
  Transmission Date: 20141002
  Serious: Yes (Other)
  Sender: FDA-Public Use
  Company Number: CHPA2014US002559

PATIENT
  Sex: Female

DRUGS (3)
  1. EXCEDRIN MIGRAINE [Suspect]
     Indication: MIGRAINE
     Dosage: UNK
  2. EXCEDRIN PM [Suspect]
     Indication: PAIN
     Dosage: UNK
  3. EXCEDRIN PM [Suspect]
     Indication: INSOMNIA

REACTIONS (2)
  - Cellulitis [Unknown]
  - Pain [Unknown]
